FAERS Safety Report 24234116 (Version 1)
Quarter: 2024Q3

REPORT INFORMATION
  Report Type: Spontaneous
  Country: US (occurrence: None)
  Receive Date: 20240820
  Receipt Date: 20240820
  Transmission Date: 20241016
  Serious: No
  Sender: Public
  Company Number: None

PATIENT
  Age: 21 Year
  Sex: Female
  Weight: 100.7 kg

DRUGS (1)
  1. PROMETHAZINE [Suspect]
     Active Substance: PROMETHAZINE HYDROCHLORIDE
     Indication: Nausea

REACTIONS (4)
  - Anxiety [None]
  - Agitation [None]
  - Restlessness [None]
  - Infusion related reaction [None]

NARRATIVE: CASE EVENT DATE: 20240819
